FAERS Safety Report 8782340 (Version 2)
Quarter: 2012Q4

REPORT INFORMATION
  Report Type: 
  Country: US (occurrence: US)
  Receive Date: 20120913
  Receipt Date: 20121219
  Transmission Date: 20130627
  Serious: No
  Sender: FDA-Public Use
  Company Number: US-VERTEX PHARMACEUTICAL INC.-2012-019872

PATIENT
  Sex: Male
  Weight: 77 kg

DRUGS (7)
  1. INCIVEK [Suspect]
     Indication: HEPATITIS C
     Dosage: 750 mg, tid
     Route: 048
     Dates: start: 20120525, end: 20120815
  2. RIBAVIRIN [Suspect]
     Indication: HEPATITIS C
     Dosage: 600 mg, bid
     Route: 048
     Dates: start: 20120525
  3. PEGASYS [Suspect]
     Indication: HEPATITIS C
     Dosage: 180 ?g, qw
     Route: 058
     Dates: start: 20120525
  4. XOPENEX [Concomitant]
     Indication: ASTHMA
     Dosage: 0.31 mg, UNK
  5. ALBUTEROL                          /00139501/ [Concomitant]
     Indication: ASTHMA
     Dosage: 2 puffs, prn, inhaled
  6. ASMANEX [Concomitant]
     Indication: ASTHMA
     Dosage: 110 ?g, UNK
  7. PREVACID [Concomitant]
     Indication: GASTROOESOPHAGEAL REFLUX DISEASE
     Dosage: 30 mg, qd
     Route: 048

REACTIONS (3)
  - Weight decreased [Unknown]
  - Rash generalised [Unknown]
  - Pruritus [Unknown]
